FAERS Safety Report 4868037-6 (Version None)
Quarter: 2005Q4

REPORT INFORMATION
  Report Type: 
  Country: None (occurrence: None)
  Receive Date: 20051227
  Receipt Date: 20051227
  Transmission Date: 20060501
  Serious: Yes (Life-Threatening)
  Sender: FDA-Public Use
  Company Number: None

PATIENT
  Age: 61 Year
  Sex: Female
  Weight: 61.2356 kg

DRUGS (2)
  1. OMIPAQUE (1) [Suspect]
  2. FLORIDE OTHE DENTAL SHOTS [Suspect]

REACTIONS (8)
  - ARTERIAL THROMBOSIS [None]
  - BONE PAIN [None]
  - CEREBRAL THROMBOSIS [None]
  - CONVULSION [None]
  - LIGAMENT DISORDER [None]
  - POST PROCEDURAL COMPLICATION [None]
  - RENAL FAILURE [None]
  - SWELLING [None]
